FAERS Safety Report 23895091 (Version 1)
Quarter: 2024Q2

REPORT INFORMATION
  Report Type: Report from Study
  Country: US (occurrence: US)
  Receive Date: 20240524
  Receipt Date: 20240524
  Transmission Date: 20240716
  Serious: No
  Sender: FDA-Public Use
  Company Number: US-ACADIA PHARMACEUTICALS INC.-ACA-2024-PIM-002201

PATIENT
  Age: 82 Year
  Sex: Male

DRUGS (13)
  1. NUPLAZID [Suspect]
     Active Substance: PIMAVANSERIN TARTRATE
     Indication: Parkinson^s disease psychosis
     Dosage: 34 MILLIGRAM, QD
     Route: 048
     Dates: start: 20240413, end: 20240423
  2. NUPLAZID [Suspect]
     Active Substance: PIMAVANSERIN TARTRATE
     Indication: Hallucination
  3. NUPLAZID [Suspect]
     Active Substance: PIMAVANSERIN TARTRATE
     Indication: Delusion
  4. NUPLAZID [Suspect]
     Active Substance: PIMAVANSERIN TARTRATE
     Indication: Parkinson^s disease
  5. QUETIAPINE [Concomitant]
     Active Substance: QUETIAPINE
  6. RYTARY [Concomitant]
     Active Substance: CARBIDOPA\LEVODOPA
  7. RIVASTIGMINE [Concomitant]
     Active Substance: RIVASTIGMINE
  8. FINASTERIDE [Concomitant]
     Active Substance: FINASTERIDE
  9. IPRATROPIUM [Concomitant]
     Active Substance: IPRATROPIUM
  10. MELATONIN [Concomitant]
     Active Substance: MELATONIN
  11. MIDODRINE [Concomitant]
     Active Substance: MIDODRINE
  12. ROSUVASTATIN [Concomitant]
     Active Substance: ROSUVASTATIN
  13. MIRTAZAPINE [Concomitant]
     Active Substance: MIRTAZAPINE

REACTIONS (1)
  - Agitation [Recovered/Resolved]

NARRATIVE: CASE EVENT DATE: 20240410
